FAERS Safety Report 9450500 (Version 11)
Quarter: 2014Q2

REPORT INFORMATION
  Report Type: Spontaneous
  Country: US (occurrence: US)
  Receive Date: 20130809
  Receipt Date: 20140430
  Transmission Date: 20141212
  Serious: Yes (Death, Hospitalization)
  Sender: FDA-Public Use
  Company Number: US-JNJFOC-20130801648

PATIENT
  Age: 75 Year
  Sex: Male

DRUGS (17)
  1. OMEPRAZOLE [Concomitant]
     Dosage: AT DINNER
     Route: 065
  2. SIMVASTATIN [Concomitant]
     Route: 065
  3. COZAAR [Concomitant]
     Route: 065
  4. LASIX [Concomitant]
     Route: 065
  5. LASIX [Concomitant]
     Route: 065
  6. POTASSIUM CHLORIDE [Concomitant]
     Route: 065
  7. XARELTO [Suspect]
     Indication: THROMBOSIS
     Route: 048
     Dates: start: 20130629, end: 20130710
  8. BABY ASPIRIN [Suspect]
     Indication: PRODUCT USED FOR UNKNOWN INDICATION
     Route: 065
  9. VITAMIN B12 [Concomitant]
     Dosage: AT BREAKFAST
     Route: 065
  10. OSTEO BI-FLEX [Concomitant]
     Route: 065
  11. VITAMIN D3 [Concomitant]
     Route: 065
  12. LEVOTHYROXINE [Concomitant]
     Dosage: IN MID-MORNING
     Route: 065
  13. COQ10 [Concomitant]
     Dosage: AT LUNCH
     Route: 065
  14. CITRACAL [Concomitant]
     Dosage: AT LUNCH
     Route: 065
  15. MAGNESIUM [Concomitant]
     Dosage: AT LUNCH
     Route: 065
  16. FISH OIL [Concomitant]
     Route: 065
  17. VITAMIN C [Concomitant]
     Dosage: AT DINNER
     Route: 065

REACTIONS (1)
  - Cerebral haemorrhage [Fatal]
